FAERS Safety Report 9147541 (Version 1)
Quarter: 2013Q1

REPORT INFORMATION
  Report Type: Spontaneous
  Country: FR (occurrence: FR)
  Receive Date: 20130307
  Receipt Date: 20130307
  Transmission Date: 20140127
  Serious: Yes (Hospitalization)
  Sender: FDA-Public Use
  Company Number: FR-ASTRAZENECA-2013SE13329

PATIENT
  Age: 8618 Day
  Sex: Female

DRUGS (2)
  1. INEXIUM [Suspect]
     Indication: ABDOMINAL PAIN UPPER
     Route: 048
     Dates: start: 201212, end: 20130122
  2. DIANE 35 [Suspect]
     Indication: CONTRACEPTION
     Route: 048
     Dates: start: 201208, end: 20130122

REACTIONS (2)
  - Pulmonary embolism [Recovered/Resolved]
  - Deep vein thrombosis [Recovered/Resolved]
